FAERS Safety Report 4870066-3 (Version None)
Quarter: 2005Q4

REPORT INFORMATION
  Report Type: 
  Country: None (occurrence: None)
  Receive Date: 20051229
  Receipt Date: 20051229
  Transmission Date: 20060501
  Serious: Yes (Death, Hospitalization)
  Sender: FDA-Public Use
  Company Number: None

PATIENT
  Sex: Male
  Weight: 69 kg

DRUGS (2)
  1. CYTARABINE [Suspect]
     Indication: ACUTE MYELOID LEUKAEMIA
     Dosage: SEE IMAGE
     Route: 042
     Dates: start: 20051126, end: 20051130
  2. DAUNORUBICIN [Suspect]
     Dosage: SEE IMAGE
     Route: 042
     Dates: start: 20051126

REACTIONS (9)
  - ARTHRALGIA [None]
  - CHILLS [None]
  - FUNGAL INFECTION [None]
  - HYPOTENSION [None]
  - NEUTROPHIL COUNT DECREASED [None]
  - PHARYNGOLARYNGEAL PAIN [None]
  - PYREXIA [None]
  - RESPIRATORY DISORDER [None]
  - WHITE BLOOD CELL COUNT DECREASED [None]
